FAERS Safety Report 17109755 (Version 2)
Quarter: 2020Q1

REPORT INFORMATION
  Report Type: Spontaneous
  Country: US (occurrence: US)
  Receive Date: 20191204
  Receipt Date: 20200117
  Transmission Date: 20200409
  Serious: Yes (Death, Life-Threatening, Other)
  Sender: FDA-Public Use
  Company Number: US-ACCORD-163741

PATIENT
  Age: 53 Year
  Sex: Female

DRUGS (9)
  1. CYCLOPHOSPHAMIDE/CYCLOPHOSPHAMIDE MONOHYDRATE [Suspect]
     Active Substance: CYCLOPHOSPHAMIDE
     Indication: ADULT T-CELL LYMPHOMA/LEUKAEMIA
     Dosage: CYCLOPHOSPHAMIDE 750 MG/M2 GIVEN AS SINGLE DOSE ON DAY 5
  2. VINCRISTINE [Suspect]
     Active Substance: VINCRISTINE
     Indication: ADULT T-CELL LYMPHOMA/LEUKAEMIA
     Dosage: 0.4 MG/ M2/D
  3. HYDRALAZINE [Concomitant]
     Active Substance: HYDRALAZINE HYDROCHLORIDE
     Indication: CARDIAC FAILURE
  4. LISINOPRIL. [Concomitant]
     Active Substance: LISINOPRIL
     Indication: CARDIAC FAILURE
  5. FUROSEMIDE. [Concomitant]
     Active Substance: FUROSEMIDE
     Indication: CARDIAC FAILURE
  6. PREDNISONE. [Suspect]
     Active Substance: PREDNISONE
     Indication: ADULT T-CELL LYMPHOMA/LEUKAEMIA
     Dosage: PREDNISONE 100 MG ON DAYS 1-5
  7. METOPROLOL. [Concomitant]
     Active Substance: METOPROLOL
     Indication: CARDIAC FAILURE
  8. ETOPOSIDE. [Suspect]
     Active Substance: ETOPOSIDE
     Indication: ADULT T-CELL LYMPHOMA/LEUKAEMIA
     Dosage: 50 MG/M2/D
  9. ISOSORBIDE. [Concomitant]
     Active Substance: ISOSORBIDE
     Indication: CARDIAC FAILURE

REACTIONS (3)
  - Febrile neutropenia [Fatal]
  - Septic shock [Fatal]
  - Sepsis [Fatal]
